FAERS Safety Report 6250114-9 (Version None)
Quarter: 2009Q2

REPORT INFORMATION
  Report Type: 
  Country: None (occurrence: None)
  Receive Date: 20090626
  Receipt Date: 20090618
  Transmission Date: 20091009
  Serious: Yes (Hospitalization, Other)
  Sender: FDA-Public Use
  Company Number: 2009US001714

PATIENT
  Age: 83 Year
  Sex: Female
  Weight: 52.6 kg

DRUGS (15)
  1. LEXISCAN [Suspect]
     Indication: SCAN MYOCARDIAL PERFUSION
     Dosage: 0.4 MG, TOTAL DOSE, IV NOS
     Route: 042
     Dates: start: 20090511, end: 20090511
  2. COREG [Concomitant]
  3. LISINOPRIL [Concomitant]
  4. PRILOSEC [Concomitant]
  5. SPIRONOLACTONE [Concomitant]
  6. ALBUTEROL [Concomitant]
  7. LOVENOX [Concomitant]
  8. ATROVENT [Concomitant]
  9. HERBS [Concomitant]
  10. FORADIL [Concomitant]
  11. CORTICOSTEROIDS [Concomitant]
  12. ACE INHIBITOR NOS [Concomitant]
  13. BETA BLOCKING AGENTS [Concomitant]
  14. DIURETICS [Concomitant]
  15. ALDOSTERONE ANTAGONISTS [Concomitant]

REACTIONS (4)
  - EJECTION FRACTION DECREASED [None]
  - HYPOTENSION [None]
  - RESPIRATORY ARREST [None]
  - SUPRAVENTRICULAR EXTRASYSTOLES [None]
